FAERS Safety Report 24339948 (Version 2)
Quarter: 2024Q3

REPORT INFORMATION
  Report Type: Spontaneous
  Country: US (occurrence: US)
  Receive Date: 20240919
  Receipt Date: 20240920
  Transmission Date: 20241017
  Serious: No
  Sender: SANOFI AVENTIS
  Company Number: US-SA-2024SA268693

PATIENT
  Age: 52 Year
  Sex: Female

DRUGS (2)
  1. THYROGEN [Suspect]
     Active Substance: THYROTROPIN ALFA
     Indication: Neoplasm malignant
     Dosage: 0.9 MG, QD
     Route: 030
  2. THYROGEN [Suspect]
     Active Substance: THYROTROPIN ALFA
     Indication: Hyperthyroidism
     Dosage: 0.9 MG, BID
     Route: 030

REACTIONS (1)
  - Off label use [Unknown]
